FAERS Safety Report 5298173-4 (Version None)
Quarter: 2007Q2

REPORT INFORMATION
  Report Type: 
  Country: None (occurrence: None)
  Receive Date: 20070416
  Receipt Date: 20070403
  Transmission Date: 20071010
  Serious: Yes (Death, Hospitalization)
  Sender: FDA-Public Use
  Company Number: BR-SHR-BR-2007-011750

PATIENT
  Age: 49 Year
  Sex: Female

DRUGS (1)
  1. BETASERON [Suspect]
     Dosage: UNK MIU, UNK
     Route: 058
     Dates: start: 20060601, end: 20061018

REACTIONS (3)
  - CARDIAC ARREST [None]
  - HOSPITALISATION [None]
  - NOSOCOMIAL INFECTION [None]
